FAERS Safety Report 18716465 (Version 2)
Quarter: 2021Q1

REPORT INFORMATION
  Report Type: Spontaneous
  Country: CN (occurrence: CN)
  Receive Date: 20210108
  Receipt Date: 20210115
  Transmission Date: 20210419
  Serious: Yes (Other)
  Sender: FDA-Public Use
  Company Number: CN-BAYER-2021-015449

PATIENT
  Age: 76 Year
  Sex: Female
  Weight: 49.5 kg

DRUGS (4)
  1. IMIPENEM AND CILASTATIN [Concomitant]
     Active Substance: CILASTATIN SODIUM\IMIPENEM
     Indication: INFECTION
     Dosage: 1 G, Q8HR
     Route: 041
     Dates: start: 20190815, end: 20190825
  2. LINEZOLID. [Concomitant]
     Active Substance: LINEZOLID
     Indication: PNEUMONIA
     Dosage: 0.6 G, BID
     Route: 041
     Dates: start: 20190816, end: 20190820
  3. MOXIFLOXACIN IV [Suspect]
     Active Substance: MOXIFLOXACIN
     Indication: PNEUMONIA
     Dosage: 250 ML, QD
     Route: 041
     Dates: start: 20190821, end: 20190823
  4. CEFMETAZOLE SODIUM [Concomitant]
     Active Substance: CEFMETAZOLE SODIUM
     Indication: CHOLECYSTITIS
     Dosage: 1 G, BID
     Dates: start: 20190731, end: 20190814

REACTIONS (4)
  - Off label use [None]
  - Hepatic encephalopathy [None]
  - Product use in unapproved indication [None]
  - Contraindicated product administered [None]

NARRATIVE: CASE EVENT DATE: 20190821
